FAERS Safety Report 4852811-6 (Version None)
Quarter: 2005Q4

REPORT INFORMATION
  Report Type: 
  Country: None (occurrence: None)
  Receive Date: 20051209
  Receipt Date: 20051205
  Transmission Date: 20060501
  Serious: Yes (Death)
  Sender: FDA-Public Use
  Company Number: 062-20785-05120076

PATIENT

DRUGS (1)
  1. THALIDOMIDE (THALIDOMIDE) (UNKNOWN) [Suspect]
     Indication: MULTIPLE MYELOMA
     Dosage: 200-400 MG, QD, ORAL
     Route: 048

REACTIONS (1)
  - ENCEPHALITIS HERPES [None]
